FAERS Safety Report 16083192 (Version 1)
Quarter: 2019Q1

REPORT INFORMATION
  Report Type: Spontaneous
  Country: US (occurrence: US)
  Receive Date: 20190318
  Receipt Date: 20190318
  Transmission Date: 20190418
  Serious: Yes (Hospitalization, Other)
  Sender: FDA-Public Use
  Company Number: US-AUROBINDO-AUR-APL-2019-014202

PATIENT

DRUGS (1)
  1. PANTOPRAZOLE [Suspect]
     Active Substance: PANTOPRAZOLE
     Indication: GASTROOESOPHAGEAL REFLUX DISEASE
     Dosage: UNK
     Route: 065

REACTIONS (18)
  - Eosinophilia [Recovered/Resolved]
  - Face oedema [Recovered/Resolved]
  - Rash pustular [Recovered/Resolved]
  - Chills [Recovered/Resolved]
  - Skin exfoliation [Recovered/Resolved]
  - Erythema [Recovered/Resolved]
  - Leukocytosis [Recovered/Resolved]
  - Scab [Recovered/Resolved]
  - Night sweats [Recovered/Resolved]
  - Rash erythematous [Recovered/Resolved]
  - Dizziness [Recovered/Resolved]
  - Staphylococcal infection [Recovered/Resolved]
  - Hypotension [Recovered/Resolved]
  - Acute generalised exanthematous pustulosis [Recovered/Resolved]
  - C-reactive protein increased [Recovered/Resolved]
  - Eczema [Recovered/Resolved]
  - Pyrexia [Recovered/Resolved]
  - Rash pruritic [Recovered/Resolved]
